FAERS Safety Report 11474819 (Version 1)
Quarter: 2015Q3

REPORT INFORMATION
  Report Type: Spontaneous
  Country: US (occurrence: None)
  Receive Date: 20150908
  Receipt Date: 20150908
  Transmission Date: 20151125
  Serious: No
  Sender: FDA-Public Use
  Company Number: None

PATIENT
  Age: 33 Year
  Sex: Female
  Weight: 128.37 kg

DRUGS (1)
  1. MIRENA [Suspect]
     Active Substance: LEVONORGESTREL

REACTIONS (6)
  - Mood swings [None]
  - Anxiety [None]
  - Menorrhagia [None]
  - Depression [None]
  - Weight increased [None]
  - Oral mucosal blistering [None]

NARRATIVE: CASE EVENT DATE: 20150904
